FAERS Safety Report 23592835 (Version 1)
Quarter: 2024Q1

REPORT INFORMATION
  Report Type: Spontaneous
  Country: US (occurrence: US)
  Receive Date: 20240304
  Receipt Date: 20240304
  Transmission Date: 20240409
  Serious: Yes (Death, Hospitalization, Disabling, Other)
  Sender: FDA-Public Use
  Company Number: US-MERCK-0501USA04325

PATIENT
  Sex: Male
  Weight: 113.4 kg

DRUGS (1)
  1. VIOXX [Suspect]
     Active Substance: ROFECOXIB
     Indication: Spinal osteoarthritis
     Dosage: 25-50 MG, DAILY
     Route: 048
     Dates: start: 20000814, end: 20040928

REACTIONS (21)
  - Myocardial infarction [Fatal]
  - Coronary artery disease [Unknown]
  - Electrocardiogram ST-T segment abnormal [Unknown]
  - Electrocardiogram QT prolonged [Unknown]
  - Diabetic foot infection [Not Recovered/Not Resolved]
  - Myocardial ischaemia [Unknown]
  - Arterial occlusive disease [Unknown]
  - Pericardial effusion [Unknown]
  - Cardiac valve sclerosis [Unknown]
  - Type 2 diabetes mellitus [Unknown]
  - Venous stenosis [Unknown]
  - Atrial flutter [Unknown]
  - Atrioventricular block first degree [Unknown]
  - Intermittent claudication [Unknown]
  - Arterial occlusive disease [Unknown]
  - Left atrial enlargement [Unknown]
  - Left ventricular hypertrophy [Unknown]
  - Hypokinesia [Unknown]
  - Arterial occlusive disease [Unknown]
  - Mental disorder [Unknown]
  - Emotional disorder [Unknown]

NARRATIVE: CASE EVENT DATE: 20030423
